FAERS Safety Report 22320869 (Version 1)
Quarter: 2023Q2

REPORT INFORMATION
  Report Type: Spontaneous
  Country: IT (occurrence: IT)
  Receive Date: 20230515
  Receipt Date: 20230515
  Transmission Date: 20230721
  Serious: Yes (Hospitalization, Other)
  Sender: FDA-Public Use
  Company Number: IT-DSJP-DSE-2023-118623

PATIENT
  Age: 81 Year
  Sex: Male

DRUGS (7)
  1. OLMESARTAN MEDOXOMIL [Suspect]
     Active Substance: OLMESARTAN MEDOXOMIL
     Indication: Hypertension
     Dosage: UNK
     Route: 065
  2. AMLODIPINE [Concomitant]
     Active Substance: AMLODIPINE BESYLATE
     Indication: Hypertension
     Dosage: UNK
  3. RIVASTIGMINE [Concomitant]
     Active Substance: RIVASTIGMINE
     Indication: Cognitive disorder
     Dosage: 9.5 MG, ONCE EVERY 6 MO ((9.5-MG PATCH RENEWED EVERY 6 MONTHS))
     Route: 065
  4. RIVASTIGMINE [Concomitant]
     Active Substance: RIVASTIGMINE
     Dosage: 4.6 MG, QD
     Route: 065
  5. RIVASTIGMINE [Concomitant]
     Active Substance: RIVASTIGMINE
     Dosage: 9.5 MG, QD
     Route: 065
  6. ESCITALOPRAM [Concomitant]
     Active Substance: ESCITALOPRAM OXALATE
     Indication: Cognitive disorder
     Dosage: 10 MG
     Route: 065
  7. UNSPECIFIED INGREDIENT [Concomitant]
     Active Substance: UNSPECIFIED INGREDIENT
     Indication: Dyslipidaemia

REACTIONS (4)
  - Gastrointestinal infection [Unknown]
  - Hypokalaemia [Unknown]
  - Diarrhoea [Recovering/Resolving]
  - Acute kidney injury [Unknown]
